FAERS Safety Report 17171406 (Version 2)
Quarter: 2020Q1

REPORT INFORMATION
  Report Type: Spontaneous
  Country: US (occurrence: US)
  Receive Date: 20191218
  Receipt Date: 20200304
  Transmission Date: 20200409
  Serious: No
  Sender: FDA-Public Use
  Company Number: US-TEVA-2019-US-1152204

PATIENT
  Age: 76 Year
  Sex: Female

DRUGS (1)
  1. ATENOLOL AND CHLORTHALIDONE [Suspect]
     Active Substance: ATENOLOL\CHLORTHALIDONE
     Dosage: ATENOLOL TABLETS 50 MG AND CHLORTHALIDONE 25 MG
     Route: 065

REACTIONS (4)
  - Drug intolerance [Recovering/Resolving]
  - Palpitations [Recovering/Resolving]
  - Headache [Recovering/Resolving]
  - Night sweats [Recovering/Resolving]
